FAERS Safety Report 9571370 (Version 2)
Quarter: 2013Q4

REPORT INFORMATION
  Report Type: Spontaneous
  Country: JP (occurrence: JP)
  Receive Date: 20131001
  Receipt Date: 20131009
  Transmission Date: 20140711
  Serious: Yes (Other)
  Sender: FDA-Public Use
  Company Number: JP-NOVOPROD-388275

PATIENT
  Age: 3 Year
  Sex: Male

DRUGS (1)
  1. NORDITROPIN FLEXPROCHU 6.7 MG/ML [Suspect]
     Indication: SMALL FOR DATES BABY
     Dosage: 0.4 MG, QD
     Route: 058
     Dates: start: 20130514, end: 201309

REACTIONS (1)
  - Type 1 diabetes mellitus [Not Recovered/Not Resolved]
